FAERS Safety Report 10042439 (Version 2)
Quarter: 2014Q1

REPORT INFORMATION
  Report Type: Spontaneous
  Country: NA (occurrence: NA)
  Receive Date: 20140327
  Receipt Date: 20140327
  Transmission Date: 20141002
  Serious: Yes (Disabling)
  Sender: FDA-Public Use
  Company Number: NA-ALLERGAN-1404041US

PATIENT
  Age: 49 Year
  Sex: Male

DRUGS (1)
  1. ALPHAGAN PURITE [Suspect]
     Indication: GLAUCOMA
     Dosage: 1 GTT, BID
     Route: 047
     Dates: start: 20140116, end: 20140206

REACTIONS (6)
  - Myalgia [Recovered/Resolved]
  - Muscular weakness [Recovered/Resolved]
  - Depression [Recovered/Resolved]
  - Fatigue [Recovered/Resolved]
  - Lethargy [Unknown]
  - Somnolence [Unknown]
